FAERS Safety Report 12701485 (Version 2)
Quarter: 2017Q1

REPORT INFORMATION
  Report Type: Spontaneous
  Country: US (occurrence: US)
  Receive Date: 20160831
  Receipt Date: 20170330
  Transmission Date: 20170428
  Serious: No
  Sender: FDA-Public Use
  Company Number: US-PFIZER INC-2016404932

PATIENT
  Age: 35 Year
  Sex: Female
  Weight: 61.23 kg

DRUGS (15)
  1. SOLU-MEDROL [Suspect]
     Active Substance: METHYLPREDNISOLONE SODIUM SUCCINATE
     Indication: ARTHROPOD STING
     Dosage: UNK
     Route: 030
     Dates: start: 20160822
  2. CORTEF [Concomitant]
     Active Substance: HYDROCORTISONE
     Indication: ADRENAL INSUFFICIENCY
     Dosage: 30MG SPLIT INTO 4 TIMES A DAY BY MOUTH
     Route: 048
     Dates: start: 201511
  3. ZOFRAN [Concomitant]
     Active Substance: ONDANSETRON HYDROCHLORIDE
     Indication: NAUSEA
     Dosage: 8MG TABLET BY MOUTH EVERY 8 HOURS AS NEEDED
     Route: 048
     Dates: start: 2009
  4. SINGULAIR [Concomitant]
     Active Substance: MONTELUKAST SODIUM
     Indication: WHEEZING
     Dosage: 1 TABLET BY MOUTH TWICE A DAY 10MG
     Route: 048
     Dates: start: 201601
  5. ZYRTEC [Concomitant]
     Active Substance: CETIRIZINE HYDROCHLORIDE
     Indication: MAST CELL ACTIVATION SYNDROME
     Dosage: 10 MG, 2X/DAY
     Dates: start: 2016
  6. ZANTAC [Concomitant]
     Active Substance: RANITIDINE HYDROCHLORIDE
     Indication: GASTROOESOPHAGEAL REFLUX DISEASE
  7. PREDNISONE. [Concomitant]
     Active Substance: PREDNISONE
     Indication: INFLAMMATION
     Dosage: 5MG TABLETS, TAKE 3 A DAY
     Dates: start: 2011
  8. VITAMIN D [Concomitant]
     Active Substance: CHOLECALCIFEROL
     Indication: VITAMIN D DEFICIENCY
     Dosage: 2500 IU, 1X/DAY
     Dates: start: 201605
  9. VENTOLIN HFA [Concomitant]
     Active Substance: ALBUTEROL SULFATE
     Indication: WHEEZING
     Dosage: 90MCG INHALER, 2 PUFFS EVERY 4 HRS BY MOUTH AS NEEDED
     Route: 048
     Dates: start: 201601
  10. SINGULAIR [Concomitant]
     Active Substance: MONTELUKAST SODIUM
     Indication: MAST CELL ACTIVATION SYNDROME
  11. ZANTAC [Concomitant]
     Active Substance: RANITIDINE HYDROCHLORIDE
     Indication: MAST CELL ACTIVATION SYNDROME
     Dosage: 150MG TABLET ONE IN AM AND ONE IN PM
     Dates: start: 201606
  12. ATARAX [Concomitant]
     Active Substance: HYDROXYZINE HYDROCHLORIDE
     Indication: MAST CELL ACTIVATION SYNDROME
     Dosage: 25MG BY MOUTH EVERY 6 HOURS AS NEEDED
     Route: 048
     Dates: start: 201607
  13. PREDNISONE. [Concomitant]
     Active Substance: PREDNISONE
     Indication: ADRENAL INSUFFICIENCY
     Dosage: 2.5 MG, UNK (THREE OR FOUR TIMES A DAY DEPENDING ON HOW SHE IS FEELING)
     Route: 048
     Dates: start: 2012
  14. PREDNISONE. [Concomitant]
     Active Substance: PREDNISONE
     Dosage: 10 MG, 1X/DAY (FOUR 2.5 MG FOR A TOTAL OF 10MG)
     Dates: start: 20170313
  15. BENADRYL [Concomitant]
     Active Substance: DIPHENHYDRAMINE HYDROCHLORIDE
     Indication: MAST CELL ACTIVATION SYNDROME
     Dosage: 25MG, TAKES 1 TAB AS NEEDED
     Dates: start: 201605

REACTIONS (3)
  - Drug effect delayed [Unknown]
  - Stress [Not Recovered/Not Resolved]
  - Fatigue [Not Recovered/Not Resolved]

NARRATIVE: CASE EVENT DATE: 20160822
